FAERS Safety Report 16831336 (Version 1)
Quarter: 2019Q3

REPORT INFORMATION
  Report Type: Spontaneous
  Country: GB (occurrence: GB)
  Receive Date: 20190920
  Receipt Date: 20190920
  Transmission Date: 20191005
  Serious: Yes (Other)
  Sender: FDA-Public Use
  Company Number: GB-TEVA-2019-GB-1109844

PATIENT
  Age: 60 Year
  Sex: Female
  Weight: 56.24 kg

DRUGS (2)
  1. PROPRANOLOL [Suspect]
     Active Substance: PROPRANOLOL HYDROCHLORIDE
     Indication: MIGRAINE PROPHYLAXIS
     Dosage: 40 MG
     Route: 048
     Dates: start: 20190805, end: 20190817
  2. TERBINAFINE. [Concomitant]
     Active Substance: TERBINAFINE
     Dosage: 1 DF

REACTIONS (3)
  - Depression [Unknown]
  - Apathy [Unknown]
  - Anxiety [Unknown]

NARRATIVE: CASE EVENT DATE: 20190812
